FAERS Safety Report 16646089 (Version 1)
Quarter: 2019Q3

REPORT INFORMATION
  Report Type: Spontaneous
  Country: US (occurrence: US)
  Receive Date: 20190730
  Receipt Date: 20190730
  Transmission Date: 20191004
  Serious: No
  Sender: FDA-Public Use
  Company Number: US-GLENMARK PHARMACEUTICALS-2019GMK040290

PATIENT

DRUGS (2)
  1. MUPIROCIN OINTMENT USP, 2% [Suspect]
     Active Substance: MUPIROCIN
     Indication: THERMAL BURN
  2. MUPIROCIN OINTMENT USP, 2% [Suspect]
     Active Substance: MUPIROCIN
     Indication: BURN ORAL CAVITY
     Dosage: UNK (LIPS AND INSIDE THE MOUTH)
     Route: 061

REACTIONS (3)
  - Incorrect route of product administration [Unknown]
  - Product use in unapproved indication [Unknown]
  - Prescription drug used without a prescription [Unknown]
